FAERS Safety Report 15866946 (Version 2)
Quarter: 2019Q1

REPORT INFORMATION
  Report Type: Spontaneous
  Country: AT (occurrence: AT)
  Receive Date: 20190125
  Receipt Date: 20190211
  Transmission Date: 20190417
  Serious: Yes (Hospitalization, Other)
  Sender: FDA-Public Use
  Company Number: AT-ACCORD-103459

PATIENT
  Age: 73 Year
  Sex: Male

DRUGS (2)
  1. ALLOPURINOL. [Suspect]
     Active Substance: ALLOPURINOL
     Indication: BLOOD URIC ACID INCREASED
     Dosage: UNK
     Route: 065
     Dates: start: 20170215
  2. OPDIVO [Suspect]
     Active Substance: NIVOLUMAB
     Indication: CLEAR CELL RENAL CELL CARCINOMA
     Dosage: 3 MG/KG, UNK?ALSO RECEIVED FROM APR-2018
     Route: 065
     Dates: start: 201610

REACTIONS (5)
  - Pemphigoid [Unknown]
  - Skin reaction [Unknown]
  - Oesophagitis [Unknown]
  - Gastritis [Unknown]
  - Lichen planus [Unknown]

NARRATIVE: CASE EVENT DATE: 201703
